FAERS Safety Report 17651488 (Version 4)
Quarter: 2020Q2

REPORT INFORMATION
  Report Type: Spontaneous
  Country: US (occurrence: US)
  Receive Date: 20200409
  Receipt Date: 20200615
  Transmission Date: 20200713
  Serious: Yes (Hospitalization)
  Sender: FDA-Public Use
  Company Number: US-SAREPTA THERAPEUTICS INC.-SRP2020-000719

PATIENT
  Age: 18 Year
  Sex: Male
  Weight: 63.49 kg

DRUGS (12)
  1. COREG [Concomitant]
     Active Substance: CARVEDILOL
     Indication: LEFT VENTRICULAR DYSFUNCTION
     Dosage: 6.25 MG, BID
     Route: 048
     Dates: start: 20180222
  2. VITAMIN C [Concomitant]
     Active Substance: ASCORBIC ACID
     Indication: SUPPLEMENTATION THERAPY
     Dosage: 1 G, QD
     Route: 048
     Dates: start: 20180711
  3. SPIRONOLACTONE. [Concomitant]
     Active Substance: SPIRONOLACTONE
     Indication: VENTRICULAR DYSFUNCTION
     Dosage: 25 MG, QD
     Route: 048
     Dates: start: 20180222
  4. SERTRALINE [Concomitant]
     Active Substance: SERTRALINE HYDROCHLORIDE
     Indication: ANXIETY
     Dosage: 75 MG, QD
     Route: 048
     Dates: start: 20180711
  5. METFORMIN [Concomitant]
     Active Substance: METFORMIN HYDROCHLORIDE
     Indication: DIABETES PROPHYLAXIS
  6. NORMAL SALINE [Concomitant]
     Active Substance: SODIUM CHLORIDE
     Indication: INFUSION
     Dosage: 1-3 ML PRE/POST INFUSION AND PRN
     Route: 042
     Dates: start: 20180222
  7. EXONDYS 51 [Suspect]
     Active Substance: ETEPLIRSEN
     Indication: DUCHENNE MUSCULAR DYSTROPHY
     Dosage: 140 ML, WEEKLY
     Route: 042
     Dates: start: 20180222
  8. VITAMIN D3 [Concomitant]
     Active Substance: CHOLECALCIFEROL
     Indication: SUPPLEMENTATION THERAPY
     Dosage: 2000 IU, QD
     Route: 048
     Dates: start: 20180222
  9. DEFLAZACORT [Concomitant]
     Active Substance: DEFLAZACORT
     Indication: ANTIINFLAMMATORY THERAPY
     Dosage: 30 MG, QD
     Route: 048
     Dates: start: 20180222
  10. LOSARTAN. [Concomitant]
     Active Substance: LOSARTAN
     Indication: LEFT VENTRICULAR DYSFUNCTION
     Dosage: 25 MG, QD
     Route: 048
     Dates: start: 20180222
  11. COQ 10 [Concomitant]
     Active Substance: UBIDECARENONE
     Indication: SUPPLEMENTATION THERAPY
     Dosage: 400 MG, QD
     Route: 048
     Dates: start: 20180222
  12. METFORMIN [Concomitant]
     Active Substance: METFORMIN HYDROCHLORIDE
     Indication: TYPE 2 DIABETES MELLITUS
     Dosage: 750 MG, QD
     Route: 048
     Dates: start: 20180222

REACTIONS (1)
  - Infected bite [Recovered/Resolved]

NARRATIVE: CASE EVENT DATE: 20200325
